FAERS Safety Report 8534337-1 (Version None)
Quarter: 2012Q3

REPORT INFORMATION
  Report Type: 
  Country: None (occurrence: None)
  Receive Date: 20120724
  Receipt Date: 20120716
  Transmission Date: 20120928
  Serious: Yes (Death, Life-Threatening)
  Sender: FDA-Public Use
  Company Number: ES-JNJFOC-20120602762

PATIENT
  Age: 77 Year
  Sex: Male

DRUGS (3)
  1. INFLIXIMAB, RECOMBINANT [Suspect]
     Indication: ANKYLOSING SPONDYLITIS
     Dosage: DOSE REPORTED AS ^5^
     Route: 042
     Dates: start: 20050418, end: 20090201
  2. OMEPRAZOLE [Concomitant]
  3. NSAID [Concomitant]

REACTIONS (1)
  - ADENOSQUAMOUS CELL LUNG CANCER [None]
